FAERS Safety Report 19115912 (Version 1)
Quarter: 2021Q2

REPORT INFORMATION
  Report Type: Spontaneous
  Country: NO (occurrence: NO)
  Receive Date: 20210410
  Receipt Date: 20210410
  Transmission Date: 20210717
  Serious: Yes (Hospitalization)
  Sender: FDA-Public Use
  Company Number: NO-ROCHE-2803703

PATIENT
  Age: 73 Year
  Sex: Female

DRUGS (1)
  1. KADCYLA [Suspect]
     Active Substance: ADO-TRASTUZUMAB EMTANSINE
     Indication: ADJUVANT THERAPY
     Dosage: POWDER FOR CONCENTRATE FOR INFUSION?DATE OF MOST RECENT DOSE: 20/JAN/2021
     Route: 042
     Dates: start: 20201230

REACTIONS (4)
  - Atrial fibrillation [Recovering/Resolving]
  - Pericardial effusion [Recovering/Resolving]
  - C-reactive protein increased [Recovering/Resolving]
  - Pleural effusion [Recovering/Resolving]

NARRATIVE: CASE EVENT DATE: 20210126
